FAERS Safety Report 6518835-8 (Version None)
Quarter: 2009Q4

REPORT INFORMATION
  Report Type: 
  Country: None (occurrence: None)
  Receive Date: 20091228
  Receipt Date: 20091218
  Transmission Date: 20100525
  Serious: Yes (Hospitalization, Other)
  Sender: FDA-Public Use
  Company Number: US-JNJFOC-20091206681

PATIENT
  Sex: Male

DRUGS (5)
  1. RISPERIDONE CONSTA [Suspect]
     Indication: BIPOLAR DISORDER
     Route: 030
  2. RISPERIDONE CONSTA [Suspect]
     Route: 030
  3. RISPERIDONE CONSTA [Suspect]
     Route: 030
  4. DEPAKOTE [Suspect]
     Indication: BIPOLAR DISORDER
     Route: 065
  5. HALDOL [Concomitant]
     Indication: BIPOLAR DISORDER
     Route: 065

REACTIONS (4)
  - ABNORMAL BEHAVIOUR [None]
  - HALLUCINATION [None]
  - INAPPROPRIATE SCHEDULE OF DRUG ADMINISTRATION [None]
  - MANIA [None]
